FAERS Safety Report 5836722-5 (Version None)
Quarter: 2008Q3

REPORT INFORMATION
  Report Type: 
  Country: None (occurrence: None)
  Receive Date: 20080807
  Receipt Date: 20080728
  Transmission Date: 20090109
  Serious: Yes (Death, Hospitalization)
  Sender: FDA-Public Use
  Company Number: US-TEVA-159423USA

PATIENT
  Sex: Male

DRUGS (11)
  1. FLUOROURACIL [Suspect]
     Indication: COLORECTAL CANCER METASTATIC
     Dosage: 2 WEEK
     Route: 041
     Dates: start: 20070709, end: 20070709
  2. FOLINIC ACID [Suspect]
     Indication: COLORECTAL CANCER METASTATIC
     Dosage: 800 MILLIGRAM  2 WEEK
     Route: 041
     Dates: start: 20070326, end: 20070709
  3. OXALIPLATIN [Suspect]
     Indication: COLORECTAL CANCER METASTATIC
     Dosage: 131.3 MILLIGRAM  2 WEEK
     Route: 041
     Dates: start: 20070709, end: 20070709
  4. BEVACIZUMAB [Suspect]
     Indication: COLORECTAL CANCER METASTATIC
     Dosage: 385.5  2 WEEK
     Route: 041
     Dates: start: 20070709, end: 20070709
  5. WARFARIN SODIUM [Concomitant]
     Dates: start: 20070201
  6. LOSARTAN POTASSIUM [Concomitant]
     Dates: start: 19920101
  7. DILTIAZEM HCL [Concomitant]
     Dates: start: 20061101
  8. FAMOTIDINE [Concomitant]
     Dates: start: 20070201
  9. DIGOXIN [Concomitant]
     Dates: start: 20070201
  10. ATORVASTATIN CALCIUM [Concomitant]
     Dates: start: 19940101
  11. MULTI-VITAMIN [Concomitant]
     Dates: start: 20070201

REACTIONS (4)
  - ANAEMIA [None]
  - DEHYDRATION [None]
  - PARANEOPLASTIC SYNDROME [None]
  - SEPSIS [None]
